FAERS Safety Report 5639365-1 (Version None)
Quarter: 2008Q1

REPORT INFORMATION
  Report Type: 
  Country: None (occurrence: None)
  Receive Date: 20080226
  Receipt Date: 20080219
  Transmission Date: 20080703
  Serious: Yes (Death, Hospitalization, Other)
  Sender: FDA-Public Use
  Company Number: US-PFIZER INC-2007016599

PATIENT
  Sex: Male
  Weight: 99.8 kg

DRUGS (3)
  1. BEXTRA [Suspect]
     Indication: ARTHRITIS
     Route: 048
     Dates: start: 20030901, end: 20040904
  2. BEXTRA [Suspect]
     Indication: PAIN
  3. BEXTRA [Suspect]
     Indication: MUSCULOSKELETAL PAIN

REACTIONS (1)
  - CEREBROVASCULAR ACCIDENT [None]
